FAERS Safety Report 7805796-4 (Version None)
Quarter: 2011Q4

REPORT INFORMATION
  Report Type: 
  Country: None (occurrence: None)
  Receive Date: 20111011
  Receipt Date: 20110930
  Transmission Date: 20120403
  Serious: No
  Sender: FDA-Public Use
  Company Number: US-BIOGENIDEC-2011BI037886

PATIENT
  Age: 36 Year
  Sex: Female

DRUGS (4)
  1. TYSABRI [Suspect]
     Indication: MULTIPLE SCLEROSIS
     Route: 042
     Dates: start: 20110628, end: 20110923
  2. IV ZOFRAN [Concomitant]
     Indication: PREMEDICATION
     Dates: start: 20110923, end: 20110923
  3. IV BENADRYL [Concomitant]
     Indication: PREMEDICATION
     Dates: start: 20110923, end: 20110923
  4. IV PEPCID [Concomitant]
     Indication: PREMEDICATION
     Dates: start: 20110923, end: 20110923

REACTIONS (8)
  - HOT FLUSH [None]
  - ERYTHEMA [None]
  - RASH PAPULAR [None]
  - BLOOD PRESSURE SYSTOLIC INCREASED [None]
  - CRYING [None]
  - NAUSEA [None]
  - SWELLING FACE [None]
  - VOMITING [None]
